FAERS Safety Report 9684600 (Version 1)
Quarter: 2013Q4

REPORT INFORMATION
  Report Type: Spontaneous
  Country: FR (occurrence: FR)
  Receive Date: 20131112
  Receipt Date: 20131112
  Transmission Date: 20140711
  Serious: Yes (Other)
  Sender: FDA-Public Use
  Company Number: FR-TEVA-441742ISR

PATIENT
  Sex: Male

DRUGS (15)
  1. MODIODAL [Suspect]
     Route: 048
  2. CLOPIDOGREL MYLAN [Interacting]
     Route: 048
     Dates: end: 201107
  3. PLAVIX [Interacting]
     Route: 048
  4. SIMVASTATINE (BRAND NAME NOT SPECIFIED) [Concomitant]
  5. KARDEGIC [Concomitant]
  6. LODOZ [Concomitant]
  7. LOPERAMIDE (BRAND NAME NOT SPECIFIED) [Concomitant]
  8. AERIUS [Concomitant]
  9. ZOXAN LP [Concomitant]
  10. SIFROL [Concomitant]
  11. DAFALGAN [Concomitant]
  12. COVERSYL [Concomitant]
  13. PERMIXON [Concomitant]
  14. ADARTREL [Concomitant]
  15. RABEPRAZOLE (BRAND NAME NOT SPECIFIED) [Concomitant]

REACTIONS (3)
  - Malabsorption [Unknown]
  - Drug ineffective [Unknown]
  - Drug interaction [Unknown]
